FAERS Safety Report 9979622 (Version 1)
Quarter: 2014Q1

REPORT INFORMATION
  Report Type: Report from Study
  Country: US (occurrence: US)
  Receive Date: 20140306
  Receipt Date: 20140306
  Transmission Date: 20141002
  Serious: Yes (Hospitalization)
  Sender: FDA-Public Use
  Company Number: US-ABBVIE-13P-163-1168119-00

PATIENT
  Age: 19 Year
  Sex: Male
  Weight: 58.11 kg

DRUGS (3)
  1. HUMIRA [Suspect]
     Indication: CROHN^S DISEASE
     Route: 058
     Dates: start: 201301
  2. ASACOL [Concomitant]
     Indication: CROHN^S DISEASE
  3. METHOTREXATE [Concomitant]
     Indication: CROHN^S DISEASE

REACTIONS (5)
  - Crohn^s disease [Recovering/Resolving]
  - Abdominal pain [Recovering/Resolving]
  - Blood immunoglobulin A abnormal [Unknown]
  - Blood immunoglobulin M abnormal [Unknown]
  - Epstein-Barr virus test positive [Unknown]
